FAERS Safety Report 17194115 (Version 1)
Quarter: 2019Q4

REPORT INFORMATION
  Report Type: Spontaneous
  Country: SE (occurrence: SE)
  Receive Date: 20191224
  Receipt Date: 20191224
  Transmission Date: 20200122
  Serious: Yes (Hospitalization)
  Sender: FDA-Public Use
  Company Number: SE-TEVA-2019-SE-1155418

PATIENT
  Age: 29 Year
  Sex: Female

DRUGS (6)
  1. PROPAVAN [Suspect]
     Active Substance: PROPIOMAZINE
     Dosage: 500 MG, ^INTAKE YESTERDAY AT 23 HALF, AND OTHER HALF AT 5-6 PM^
     Route: 048
     Dates: start: 20180818, end: 20180819
  2. QUETIAPINE. [Suspect]
     Active Substance: QUETIAPINE
     Dosage: 24X25MG=600 MG, ^INTAKE YESTERDAY AT 23 HALF, AND OTHER HALF AT 17-18^
     Route: 048
     Dates: start: 20180818, end: 20180819
  3. THERALEN [Suspect]
     Active Substance: TRIMEPRAZINE
     Dosage: ^25 THERALEN^, ^INTAKE YESTERDAY AT 23 HALF, AND SECOND HALF AT 5-6 PM^
     Route: 048
     Dates: start: 20180818, end: 20180819
  4. LERGIGAN MITE [PROMETHAZINE HYDROCHLORIDE] [Suspect]
     Active Substance: PROMETHAZINE HYDROCHLORIDE
     Dosage: 5X5 MG=25 MG. ^INTAKE YESTERDAY AT 23 HALF, AND OTHER HALF AT 17-18^
     Route: 048
     Dates: start: 20180818, end: 20180819
  5. OXASCAND [Suspect]
     Active Substance: OXAZEPAM
     Dosage: 20X5 MG=100 MG. ^INTAKE YESTERDAY AT 23 HALF, AND OTHER HALF AT 17-18^
     Route: 048
     Dates: start: 20180818, end: 20180819
  6. OLANZAPINE. [Suspect]
     Active Substance: OLANZAPINE
     Dosage: 24X2.5 MG= 60 MG. ^INTAKE YESTERDAY AT 23 HALF, AND OTHER HALF AT 17-18^
     Route: 048
     Dates: start: 20180818, end: 20180819

REACTIONS (2)
  - Intentional overdose [Unknown]
  - Intentional self-injury [Unknown]

NARRATIVE: CASE EVENT DATE: 20180818
